FAERS Safety Report 10285834 (Version 1)
Quarter: 2014Q3

REPORT INFORMATION
  Report Type: Spontaneous
  Country: US (occurrence: None)
  Receive Date: 20140703
  Receipt Date: 20140703
  Transmission Date: 20150326
  Serious: Yes (Other)
  Sender: FDA-Public Use
  Company Number: None

PATIENT
  Age: 68 Year
  Sex: Male
  Weight: 100.7 kg

DRUGS (2)
  1. ASPIRIN. [Concomitant]
     Active Substance: ASPIRIN
  2. LOSARTAN [Suspect]
     Active Substance: LOSARTAN
     Indication: BLOOD CHOLESTEROL INCREASED
     Dosage: 25 MG, 30 PILL, TAKE 1 TABLET MOUTH DAILY, BY AT NIGHT
     Route: 048
     Dates: start: 2013, end: 201404

REACTIONS (9)
  - Pain in extremity [None]
  - Burning sensation [None]
  - Pruritus [None]
  - Ocular icterus [None]
  - Muscular weakness [None]
  - Dizziness [None]
  - Myalgia [None]
  - Oropharyngeal pain [None]
  - Eye disorder [None]

NARRATIVE: CASE EVENT DATE: 2013
